FAERS Safety Report 6252125-6 (Version None)
Quarter: 2009Q2

REPORT INFORMATION
  Report Type: 
  Country: None (occurrence: None)
  Receive Date: 20090630
  Receipt Date: 20041008
  Transmission Date: 20091009
  Serious: Yes (Hospitalization)
  Sender: FDA-Public Use
  Company Number: US-ROCHE-639121

PATIENT
  Sex: Male

DRUGS (6)
  1. ENFUVIRTIDE [Suspect]
     Route: 065
     Dates: start: 20040323, end: 20041001
  2. LEXIVA [Concomitant]
     Dates: start: 20040323, end: 20041001
  3. ZERIT [Concomitant]
     Dates: start: 20040323, end: 20041001
  4. EMTRIVA [Concomitant]
     Dates: start: 20040323, end: 20041001
  5. DAPSONE [Concomitant]
     Dates: start: 20040323, end: 20040101
  6. DIFLUCAN [Concomitant]
     Dates: start: 20040323, end: 20060101

REACTIONS (1)
  - BRONCHITIS [None]
